FAERS Safety Report 10006831 (Version 1)
Quarter: 2014Q1

REPORT INFORMATION
  Report Type: Spontaneous
  Country: US (occurrence: None)
  Receive Date: 20140312
  Receipt Date: 20140312
  Transmission Date: 20141002
  Serious: Yes (Other)
  Sender: FDA-Public Use
  Company Number: None

PATIENT
  Age: 36 Year
  Sex: Female
  Weight: 87.09 kg

DRUGS (7)
  1. OXYCODONE/ACETAMINOPHEN [Suspect]
     Indication: HEADACHE
     Dosage: 1 EVERY 6 HOURS AS NEEDED
     Route: 048
     Dates: start: 20140306, end: 20140306
  2. LEBETALOL [Concomitant]
  3. MIRAPEX [Concomitant]
  4. ALPRAZOLAM [Concomitant]
  5. PERCOCET [Concomitant]
  6. RITALIN [Concomitant]
  7. FISH OIL [Concomitant]

REACTIONS (3)
  - Anxiety [None]
  - Palpitations [None]
  - Headache [None]
